FAERS Safety Report 23555974 (Version 1)
Quarter: 2024Q1

REPORT INFORMATION
  Report Type: Spontaneous
  Country: US (occurrence: US)
  Receive Date: 20240222
  Receipt Date: 20240222
  Transmission Date: 20240410
  Serious: Yes (Hospitalization)
  Sender: FDA-Public Use
  Company Number: US-BoehringerIngelheim-2024-BI-009000

PATIENT
  Age: 36 Year
  Sex: Male

DRUGS (1)
  1. EMPAGLIFLOZIN [Suspect]
     Active Substance: EMPAGLIFLOZIN
     Indication: Type 2 diabetes mellitus

REACTIONS (6)
  - Euglycaemic diabetic ketoacidosis [Recovered/Resolved]
  - Diverticulum intestinal [Recovered/Resolved]
  - Haemorrhoids [Recovered/Resolved]
  - Colitis [Recovered/Resolved]
  - Hypoglycaemia [Recovered/Resolved]
  - Post procedural complication [Unknown]
